FAERS Safety Report 14555132 (Version 1)
Quarter: 2018Q1

REPORT INFORMATION
  Report Type: Spontaneous
  Country: US (occurrence: US)
  Receive Date: 20180219
  Receipt Date: 20180219
  Transmission Date: 20180509
  Serious: Yes (Other)
  Sender: FDA-Public Use
  Company Number: None

PATIENT
  Age: 31 Year
  Sex: Male
  Weight: 54 kg

DRUGS (2)
  1. LIALDA [Concomitant]
     Active Substance: MESALAMINE
  2. CITALOPRAM [Suspect]
     Active Substance: CITALOPRAM HYDROBROMIDE
     Indication: DEPRESSION
     Dosage: ?          QUANTITY:1 TABLET(S);?
     Route: 048
     Dates: start: 20131001, end: 20140101

REACTIONS (4)
  - Sexual dysfunction [None]
  - Erectile dysfunction [None]
  - Quality of life decreased [None]
  - Drug ineffective [None]

NARRATIVE: CASE EVENT DATE: 20140101
